FAERS Safety Report 7300680-7 (Version None)
Quarter: 2011Q1

REPORT INFORMATION
  Report Type: 
  Country: None (occurrence: None)
  Receive Date: 20110218
  Receipt Date: 20110203
  Transmission Date: 20110831
  Serious: Yes (Other)
  Sender: FDA-Public Use
  Company Number: US-CELGENEUS-163-21880-11021032

PATIENT
  Sex: Male
  Weight: 79.8 kg

DRUGS (2)
  1. REVLIMID [Suspect]
     Indication: MULTIPLE MYELOMA
     Route: 048
     Dates: start: 20090819, end: 20100806
  2. REVLIMID [Suspect]
     Route: 048
     Dates: start: 20100928

REACTIONS (1)
  - IMMUNOSUPPRESSION [None]
